FAERS Safety Report 21672833 (Version 2)
Quarter: 2022Q4

REPORT INFORMATION
  Report Type: Spontaneous
  Country: US (occurrence: US)
  Receive Date: 20221202
  Receipt Date: 20221206
  Transmission Date: 20230113
  Serious: No
  Sender: FDA-Public Use
  Company Number: US-002147023-NVSC2022US280028

PATIENT
  Sex: Male

DRUGS (1)
  1. PROMACTA [Suspect]
     Active Substance: ELTROMBOPAG OLAMINE
     Indication: Haemochromatosis
     Dosage: 150 MG, QD
     Route: 048
     Dates: start: 202204

REACTIONS (2)
  - Chills [Unknown]
  - Product use in unapproved indication [Unknown]
